FAERS Safety Report 6104247-8 (Version None)
Quarter: 2009Q1

REPORT INFORMATION
  Report Type: 
  Country: None (occurrence: None)
  Receive Date: 20090305
  Receipt Date: 20090220
  Transmission Date: 20090719
  Serious: Yes (Hospitalization)
  Sender: FDA-Public Use
  Company Number: FR-ELI_LILLY_AND_COMPANY-FR200902000129

PATIENT
  Age: 80 Year
  Sex: Female
  Weight: 55 kg

DRUGS (6)
  1. FORTEO [Suspect]
     Indication: OSTEOPOROSIS
     Dosage: 20 UG, DAILY (1/D)
     Route: 058
     Dates: start: 20080502
  2. ASPIRIN [Concomitant]
     Indication: CEREBROVASCULAR ACCIDENT
     Dosage: UNK, UNKNOWN
     Route: 065
  3. SINEMET [Concomitant]
     Indication: PARKINSON'S DISEASE
     Dosage: UNK, UNKNOWN
     Route: 065
  4. SECALIP [Concomitant]
     Dosage: UNK, UNKNOWN
     Route: 065
  5. OROCAL D(3) [Concomitant]
     Indication: OSTEOPOROSIS
     Dosage: UNK, UNKNOWN
     Route: 065
  6. COKENZEN [Concomitant]
     Dosage: UNK, UNKNOWN
     Route: 065

REACTIONS (2)
  - APHASIA [None]
  - FACIAL PALSY [None]
